FAERS Safety Report 5311945-2 (Version None)
Quarter: 2007Q2

REPORT INFORMATION
  Report Type: 
  Country: None (occurrence: None)
  Receive Date: 20070430
  Receipt Date: 20060525
  Transmission Date: 20071010
  Serious: No
  Sender: FDA-Public Use
  Company Number: 2006UW10260

PATIENT
  Age: 77 Year
  Sex: Male
  Weight: 93 kg

DRUGS (1)
  1. NEXIUM [Suspect]
     Indication: OESOPHAGEAL ULCER HAEMORRHAGE
     Route: 048

REACTIONS (1)
  - HEART RATE IRREGULAR [None]
